FAERS Safety Report 9616107 (Version 1)
Quarter: 2013Q4

REPORT INFORMATION
  Report Type: Spontaneous
  Country: US (occurrence: US)
  Receive Date: 20131011
  Receipt Date: 20131011
  Transmission Date: 20140711
  Serious: No
  Sender: FDA-Public Use
  Company Number: US-PURDUE-USA-2013-0100164

PATIENT
  Age: 31 Year
  Sex: Female

DRUGS (2)
  1. BUTRANS [Suspect]
     Indication: INTERVERTEBRAL DISC PROTRUSION
     Dosage: 20 MCG/HR, 1/WEEK
     Route: 062
  2. HYDROCODONE /00060002/ [Suspect]
     Indication: PAIN
     Dosage: 10 MG, PRN
     Route: 048

REACTIONS (8)
  - Pharyngeal oedema [Recovered/Resolved]
  - Swollen tongue [Recovered/Resolved]
  - Anaphylactic reaction [Recovered/Resolved]
  - Urticaria [Recovered/Resolved]
  - Pruritus [Recovered/Resolved]
  - Rash [Recovered/Resolved]
  - Application site urticaria [Recovered/Resolved]
  - Application site rash [Recovered/Resolved]
